FAERS Safety Report 16026066 (Version 4)
Quarter: 2020Q2

REPORT INFORMATION
  Report Type: Spontaneous
  Country: US (occurrence: US)
  Receive Date: 20190302
  Receipt Date: 20200526
  Transmission Date: 20200713
  Serious: Yes (Other)
  Sender: FDA-Public Use
  Company Number: US-TEVA-2019-US-1019343

PATIENT
  Sex: Male

DRUGS (5)
  1. AMLODIPINE W/VALSARTAN [Suspect]
     Active Substance: AMLODIPINE\VALSARTAN
     Indication: CHOKING
     Dosage: STRENGTH: 5 MG / 320 MG
     Route: 048
     Dates: start: 20171227, end: 20180601
  2. AMLODIPINE W/VALSARTAN [Suspect]
     Active Substance: AMLODIPINE\VALSARTAN
     Indication: THROAT TIGHTNESS
     Dosage: STRENGTH: 5 MG / 320 MG
     Route: 048
     Dates: start: 2018, end: 201809
  3. LEVOTHYROXINE. [Concomitant]
     Active Substance: LEVOTHYROXINE
     Dosage: 50 MILLIGRAM DAILY; 1 HOUR BEFORE BREAKFAST
     Route: 048
  4. LOVASTATIN. [Concomitant]
     Active Substance: LOVASTATIN
     Dosage: 40 FEMTOGRAM DAILY; MEVACOR 40 MG AT NIGHT
     Route: 048
  5. HYDROCHLOROTHIAZIDE. [Concomitant]
     Active Substance: HYDROCHLOROTHIAZIDE
     Dosage: 25 MILLIGRAM DAILY;
     Route: 048

REACTIONS (13)
  - Choking [Not Recovered/Not Resolved]
  - Dyspepsia [Not Recovered/Not Resolved]
  - Oesophageal pain [Not Recovered/Not Resolved]
  - Chest pain [Not Recovered/Not Resolved]
  - Cough [Not Recovered/Not Resolved]
  - Dysphonia [Not Recovered/Not Resolved]
  - Abnormal loss of weight [Not Recovered/Not Resolved]
  - Recalled product administered [Unknown]
  - Adverse food reaction [Not Recovered/Not Resolved]
  - Throat tightness [Recovered/Resolved]
  - Product use in unapproved indication [Unknown]
  - Dysphagia [Not Recovered/Not Resolved]
  - Oesophageal oedema [Not Recovered/Not Resolved]
